FAERS Safety Report 16934690 (Version 1)
Quarter: 2019Q4

REPORT INFORMATION
  Report Type: Spontaneous
  Country: US (occurrence: US)
  Receive Date: 20191018
  Receipt Date: 20191018
  Transmission Date: 20200122
  Serious: No
  Sender: FDA-Public Use
  Company Number: US-TEVA-2019-US-1122846

PATIENT
  Sex: Male

DRUGS (1)
  1. LIDOCAINE 2% [Suspect]
     Active Substance: LIDOCAINE
     Indication: BACK PAIN
     Dosage: THREE TO FOUR TIMES A DAY
     Dates: start: 2018, end: 2018

REACTIONS (1)
  - Drug ineffective [Unknown]

NARRATIVE: CASE EVENT DATE: 2018
